FAERS Safety Report 4785454-3 (Version None)
Quarter: 2005Q3

REPORT INFORMATION
  Report Type: 
  Country: None (occurrence: None)
  Receive Date: 20050929
  Receipt Date: 20050923
  Transmission Date: 20060218
  Serious: Yes (Hospitalization)
  Sender: FDA-Public Use
  Company Number: S05-FRA-02616-01

PATIENT
  Age: 81 Year
  Sex: Female

DRUGS (9)
  1. MEMANTINE HCL [Suspect]
     Indication: DEMENTIA ALZHEIMER'S TYPE
     Dosage: 0.25 BID PO
     Route: 048
     Dates: start: 20050512, end: 20050528
  2. DICLOFENAC [Suspect]
     Indication: PAIN
     Dosage: 75 MG QD PO
     Route: 048
     Dates: start: 20050525, end: 20050528
  3. FUROSEMIDE [Concomitant]
  4. LEVOTHYROXINE SODIUM [Concomitant]
  5. ARICEPT [Concomitant]
  6. NICARDIPINE HCL [Concomitant]
  7. POTASSIUM CHLORIDE [Concomitant]
  8. EQUANIL [Concomitant]
  9. IMOVANE (ZOPICLONE) [Concomitant]

REACTIONS (12)
  - ACUTE PULMONARY OEDEMA [None]
  - BLOOD CREATININE INCREASED [None]
  - CHLAMYDIAL INFECTION [None]
  - CONJUNCTIVITIS [None]
  - EOSINOPHILIA [None]
  - HAEMOGLOBIN DECREASED [None]
  - JOINT SWELLING [None]
  - OEDEMA PERIPHERAL [None]
  - PAIN [None]
  - RASH ERYTHEMATOUS [None]
  - RASH MACULO-PAPULAR [None]
  - VOMITING [None]
